FAERS Safety Report 9365850 (Version 3)
Quarter: 2013Q3

REPORT INFORMATION
  Report Type: Report from Study
  Country: US (occurrence: US)
  Receive Date: 20130625
  Receipt Date: 20130822
  Transmission Date: 20140515
  Serious: Yes (Other)
  Sender: FDA-Public Use
  Company Number: PHEH2013US013601

PATIENT
  Age: 43 Year
  Sex: Female

DRUGS (8)
  1. GILENYA [Suspect]
     Indication: MULTIPLE SCLEROSIS
     Dosage: 0.5 MG, QD
     Route: 048
     Dates: start: 20130501
  2. ZOLPIDEM [Concomitant]
  3. FLUOXETINE [Concomitant]
     Dosage: 20 MG, QD
  4. IRON [Concomitant]
     Dosage: 1 DF, QD
  5. CRANBERRY BERCO [Concomitant]
  6. B 12 [Concomitant]
  7. VITAMIN D3 [Concomitant]
     Dosage: 1000 U, QD
     Route: 048
  8. ECHINACEA [Concomitant]
     Dosage: 2 DF, DAILY

REACTIONS (7)
  - Sinus tachycardia [Recovering/Resolving]
  - Electrocardiogram QT prolonged [Recovering/Resolving]
  - Palpitations [Recovered/Resolved]
  - Fatigue [Recovered/Resolved]
  - Sinus bradycardia [Recovered/Resolved]
  - Blood pressure increased [Recovering/Resolving]
  - Dyspnoea [Unknown]
